FAERS Safety Report 18858258 (Version 28)
Quarter: 2025Q1

REPORT INFORMATION
  Report Type: Report from Study
  Country: US (occurrence: US)
  Receive Date: 20210208
  Receipt Date: 20250129
  Transmission Date: 20250409
  Serious: Yes (Hospitalization, Other)
  Sender: TAKEDA
  Company Number: US-SHIRE-US201926755

PATIENT
  Sex: Female
  Weight: 79 kg

DRUGS (51)
  1. HUMAN IMMUNOGLOBULIN G\HYALURONIDASE RECOMBINANT HUMAN [Suspect]
     Active Substance: HUMAN IMMUNOGLOBULIN G\HYALURONIDASE (HUMAN RECOMBINANT)
     Indication: Primary immunodeficiency syndrome
     Dosage: 30 GRAM, Q4WEEKS
     Dates: start: 20160906
  2. HUMAN IMMUNOGLOBULIN G\HYALURONIDASE RECOMBINANT HUMAN [Suspect]
     Active Substance: HUMAN IMMUNOGLOBULIN G\HYALURONIDASE (HUMAN RECOMBINANT)
     Indication: Immunodeficiency common variable
     Dosage: 30 GRAM, Q4WEEKS
     Dates: start: 20160907
  3. HUMAN IMMUNOGLOBULIN G\HYALURONIDASE RECOMBINANT HUMAN [Suspect]
     Active Substance: HUMAN IMMUNOGLOBULIN G\HYALURONIDASE (HUMAN RECOMBINANT)
     Indication: Hypogammaglobulinaemia
     Dosage: 30 GRAM, Q4WEEKS
     Dates: start: 20161007
  4. HUMAN IMMUNOGLOBULIN G\HYALURONIDASE RECOMBINANT HUMAN [Suspect]
     Active Substance: HUMAN IMMUNOGLOBULIN G\HYALURONIDASE (HUMAN RECOMBINANT)
     Dosage: 35 GRAM, Q4WEEKS
  5. HUMAN IMMUNOGLOBULIN G\HYALURONIDASE RECOMBINANT HUMAN [Suspect]
     Active Substance: HUMAN IMMUNOGLOBULIN G\HYALURONIDASE (HUMAN RECOMBINANT)
     Dosage: 35 GRAM, Q4WEEKS
  6. HUMAN IMMUNOGLOBULIN G\HYALURONIDASE RECOMBINANT HUMAN [Suspect]
     Active Substance: HUMAN IMMUNOGLOBULIN G\HYALURONIDASE (HUMAN RECOMBINANT)
  7. HUMAN IMMUNOGLOBULIN G\HYALURONIDASE RECOMBINANT HUMAN [Suspect]
     Active Substance: HUMAN IMMUNOGLOBULIN G\HYALURONIDASE (HUMAN RECOMBINANT)
     Dosage: 35 GRAM, Q4WEEKS
  8. VENLAFAXINE HCL [Concomitant]
     Active Substance: VENLAFAXINE HYDROCHLORIDE
  9. SODIUM CHLORIDE [Concomitant]
     Active Substance: SODIUM CHLORIDE
  10. ACETAMINOPHEN [Concomitant]
     Active Substance: ACETAMINOPHEN
  11. PLAQUENIL [Concomitant]
     Active Substance: HYDROXYCHLOROQUINE SULFATE
     Dosage: 200 MILLIGRAM, QD
  12. SINGULAIR [Concomitant]
     Active Substance: MONTELUKAST SODIUM
     Dosage: 10 MILLIGRAM, QD
  13. OFLOXACIN [Concomitant]
     Active Substance: OFLOXACIN
  14. METHOCARBAMOL [Concomitant]
     Active Substance: METHOCARBAMOL
  15. ACETAMINOPHEN\HYDROCODONE [Concomitant]
     Active Substance: ACETAMINOPHEN\HYDROCODONE
  16. NEURONTIN [Concomitant]
     Active Substance: GABAPENTIN
     Dosage: 1200 MILLIGRAM, TID
  17. TRELEGY ELLIPTA [Concomitant]
     Active Substance: FLUTICASONE FUROATE\UMECLIDINIUM BROMIDE\VILANTEROL TRIFENATATE
  18. VITAMIN B COMPLEX [Concomitant]
     Active Substance: CYANOCOBALAMIN\DEXPANTHENOL\NIACINAMIDE\PYRIDOXINE HYDROCHLORIDE\RIBOFLAVIN 5^-PHOSPHATE SODIUM\THIA
  19. ONDANSETRON [Concomitant]
     Active Substance: ONDANSETRON
  20. ROPINIROLE [Concomitant]
     Active Substance: ROPINIROLE
  21. LIDOCAINE [Concomitant]
     Active Substance: LIDOCAINE
  22. METHOTREXATE [Concomitant]
     Active Substance: METHOTREXATE
     Dosage: 16 MILLIGRAM, 1/WEEK
  23. MUPIROCIN [Concomitant]
     Active Substance: MUPIROCIN
  24. HYDROCHLOROTHIAZIDE [Concomitant]
     Active Substance: HYDROCHLOROTHIAZIDE
     Dosage: 12.5 MILLIGRAM, QD
  25. VITAMIN D3 [Concomitant]
     Active Substance: CHOLECALCIFEROL
     Dosage: 5000 INTERNATIONAL UNIT, QD
  26. DIPHENHYDRAMINE HYDROCHLORIDE [Concomitant]
     Active Substance: DIPHENHYDRAMINE HYDROCHLORIDE
  27. FOSAMAX [Concomitant]
     Active Substance: ALENDRONATE SODIUM
  28. XOPENEX HFA [Concomitant]
     Active Substance: LEVALBUTEROL TARTRATE
  29. BUPROPION HYDROCHLORIDE [Concomitant]
     Active Substance: BUPROPION HYDROCHLORIDE
  30. IPRATROPIUM BROMIDE [Concomitant]
     Active Substance: IPRATROPIUM BROMIDE
  31. DIPHENHYDRAMINE [Concomitant]
     Active Substance: DIPHENHYDRAMINE
  32. DRONABINOL [Concomitant]
     Active Substance: DRONABINOL
  33. CYANOCOBALAMIN [Concomitant]
     Active Substance: CYANOCOBALAMIN
  34. EFFEXOR [Concomitant]
     Active Substance: VENLAFAXINE HYDROCHLORIDE
  35. BREO ELLIPTA [Concomitant]
     Active Substance: FLUTICASONE FUROATE\VILANTEROL TRIFENATATE
  36. VITAMIN D2 [Concomitant]
     Active Substance: ERGOCALCIFEROL
  37. NALTREXONE [Concomitant]
     Active Substance: NALTREXONE
  38. B ACTIVE [Concomitant]
  39. REQUIP [Concomitant]
     Active Substance: ROPINIROLE HYDROCHLORIDE
  40. EPIPEN [Concomitant]
     Active Substance: EPINEPHRINE
  41. EPINEPHRINE [Concomitant]
     Active Substance: EPINEPHRINE
  42. BUPROPION [Concomitant]
     Active Substance: BUPROPION
  43. WELLBUTRIN [Concomitant]
     Active Substance: BUPROPION HYDROCHLORIDE
     Dosage: 75 MILLIGRAM, TID
  44. MUCINEX [Concomitant]
     Active Substance: GUAIFENESIN
  45. IPRATROPIUM [Concomitant]
     Active Substance: IPRATROPIUM
  46. LEVALBUTEROL [Concomitant]
     Active Substance: LEVALBUTEROL
  47. NALTREXONE HYDROCHLORIDE [Concomitant]
     Active Substance: NALTREXONE HYDROCHLORIDE
  48. VITAMINS [Concomitant]
     Active Substance: VITAMINS
  49. ONDANSETRON [Concomitant]
     Active Substance: ONDANSETRON
  50. ROPINIROLE HYDROCHLORIDE [Concomitant]
     Active Substance: ROPINIROLE HYDROCHLORIDE
  51. LOSARTAN POTASSIUM [Concomitant]
     Active Substance: LOSARTAN POTASSIUM

REACTIONS (54)
  - Road traffic accident [Recovering/Resolving]
  - Rib fracture [Recovering/Resolving]
  - Craniofacial fracture [Recovering/Resolving]
  - Limb injury [Unknown]
  - Peripheral swelling [Recovering/Resolving]
  - Joint swelling [Recovering/Resolving]
  - Contusion [Recovering/Resolving]
  - Joint injury [Recovering/Resolving]
  - Systemic lupus erythematosus [Unknown]
  - Neuropathy peripheral [Unknown]
  - Blood glucose decreased [Unknown]
  - Loss of consciousness [Unknown]
  - Herpes zoster [Unknown]
  - Pharyngitis streptococcal [Unknown]
  - Sinusitis [Unknown]
  - Seasonal allergy [Unknown]
  - Ear infection [Unknown]
  - Scar [Unknown]
  - Concussion [Recovering/Resolving]
  - Speech disorder [Unknown]
  - Sinus disorder [Unknown]
  - Influenza [Unknown]
  - Sleep disorder [Unknown]
  - Gout [Unknown]
  - Inner ear disorder [Unknown]
  - Inappropriate schedule of product administration [Unknown]
  - Pernicious anaemia [Unknown]
  - Pain [Unknown]
  - Constipation [Unknown]
  - Incontinence [Unknown]
  - COVID-19 [Unknown]
  - Post procedural complication [Unknown]
  - Pharyngeal erythema [Unknown]
  - Pharyngeal swelling [Unknown]
  - Ligament sprain [Unknown]
  - Bronchitis [Unknown]
  - Vertigo [Unknown]
  - Oropharyngeal pain [Unknown]
  - Balance disorder [Unknown]
  - Insomnia [Unknown]
  - Asthma [Unknown]
  - Musculoskeletal stiffness [Unknown]
  - Asthenia [Unknown]
  - Diarrhoea [Unknown]
  - Malaise [Unknown]
  - Infusion site erythema [Unknown]
  - Urticaria [Unknown]
  - Vomiting [Unknown]
  - Back pain [Unknown]
  - Headache [Unknown]
  - Nausea [Unknown]
  - Back disorder [Unknown]
  - Reaction to sweetener [Unknown]
  - Fall [Unknown]

NARRATIVE: CASE EVENT DATE: 20170101
